FAERS Safety Report 5621892-4 (Version None)
Quarter: 2008Q1

REPORT INFORMATION
  Report Type: 
  Country: None (occurrence: None)
  Receive Date: 20080211
  Receipt Date: 20071217
  Transmission Date: 20080703
  Serious: Yes (Hospitalization)
  Sender: FDA-Public Use
  Company Number: US-BRISTOL-MYERS SQUIBB COMPANY-14017073

PATIENT
  Age: 56 Year
  Sex: Female

DRUGS (3)
  1. IXEMPRA [Suspect]
     Indication: BREAST CANCER
     Dates: start: 20071214
  2. LISINOPRIL [Concomitant]
  3. XELODA [Concomitant]
     Indication: BREAST CANCER
     Dates: start: 20071214

REACTIONS (1)
  - ANGIOEDEMA [None]
